FAERS Safety Report 17963371 (Version 2)
Quarter: 2021Q1

REPORT INFORMATION
  Report Type: Spontaneous
  Country: SK (occurrence: SK)
  Receive Date: 20200630
  Receipt Date: 20210114
  Transmission Date: 20210419
  Serious: Yes (Other)
  Sender: FDA-Public Use
  Company Number: NVSC2020SK160335

PATIENT
  Sex: Female

DRUGS (5)
  1. PERJETA [Suspect]
     Active Substance: PERTUZUMAB
     Indication: BREAST CANCER METASTATIC
     Dosage: 420 MG, Q3W (3T)
     Route: 065
  2. PERJETA [Suspect]
     Active Substance: PERTUZUMAB
     Dosage: 840 MG, (2 PACKS OF 420 MG)
     Route: 042
     Dates: start: 20191230
  3. DOCETAXEL. [Suspect]
     Active Substance: DOCETAXEL
     Indication: HER2 POSITIVE BREAST CANCER
     Dosage: UNK
     Route: 065
  4. HERCEPTIN [Suspect]
     Active Substance: TRASTUZUMAB
     Indication: BREAST CANCER METASTATIC
     Dosage: 600 MG, Q3W (3T)
     Route: 058
     Dates: start: 20191230
  5. DOCETAXEL. [Suspect]
     Active Substance: DOCETAXEL
     Dosage: UNK
     Route: 042
     Dates: start: 20191230

REACTIONS (1)
  - Toxic skin eruption [Unknown]
